FAERS Safety Report 4749046-4 (Version None)
Quarter: 2005Q3

REPORT INFORMATION
  Report Type: 
  Country: None (occurrence: None)
  Receive Date: 20050819
  Receipt Date: 20050810
  Transmission Date: 20060218
  Serious: Yes (Death)
  Sender: FDA-Public Use
  Company Number: US-JNJFOC-20050803329

PATIENT
  Age: 74 Year
  Sex: Male

DRUGS (1)
  1. DURAGESIC-100 [Suspect]
     Route: 062
     Dates: start: 20050701, end: 20050805

REACTIONS (2)
  - HAEMORRHAGE [None]
  - MYELODYSPLASTIC SYNDROME [None]
